FAERS Safety Report 6478365-9 (Version None)
Quarter: 2009Q4

REPORT INFORMATION
  Report Type: 
  Country: None (occurrence: None)
  Receive Date: 20091207
  Receipt Date: 20091110
  Transmission Date: 20100525
  Serious: No
  Sender: FDA-Public Use
  Company Number: US-BAYER-200916786BCC

PATIENT
  Sex: Female

DRUGS (1)
  1. ALEVE CAPLETS ARTHRITIS STRENGTH [Suspect]
     Indication: PAIN IN EXTREMITY
     Route: 048

REACTIONS (1)
  - FAECES DISCOLOURED [None]
